FAERS Safety Report 12954691 (Version 1)
Quarter: 2016Q4

REPORT INFORMATION
  Report Type: Spontaneous
  Country: CA (occurrence: CA)
  Receive Date: 20161118
  Receipt Date: 20161118
  Transmission Date: 20170207
  Serious: Yes (Hospitalization)
  Sender: FDA-Public Use
  Company Number: CA-FRESENIUS KABI-FK201608881

PATIENT
  Age: 44 Year
  Sex: Female

DRUGS (1)
  1. DEXAMETHASONE INJECTION (MANUFACTURER UNKNOWN) [Suspect]
     Active Substance: DEXAMETHASONE
     Indication: PERIOPERATIVE ANALGESIA
     Route: 065

REACTIONS (3)
  - Postoperative wound infection [Recovered/Resolved]
  - Staphylococcal abscess [Recovered/Resolved]
  - Staphylococcal infection [Recovered/Resolved]
